FAERS Safety Report 24839261 (Version 1)
Quarter: 2025Q1

REPORT INFORMATION
  Report Type: Spontaneous
  Country: CN (occurrence: CN)
  Receive Date: 20250114
  Receipt Date: 20250114
  Transmission Date: 20250408
  Serious: Yes (Hospitalization)
  Sender: JOHNSON AND JOHNSON
  Company Number: CN-JNJFOC-20241289441

PATIENT
  Age: 54 Year
  Sex: Male
  Weight: 75 kg

DRUGS (3)
  1. RISPERDAL [Suspect]
     Active Substance: RISPERIDONE
     Indication: Schizophrenia
     Dosage: QD
     Route: 048
     Dates: start: 20241103, end: 20241127
  2. RISPERDAL [Suspect]
     Active Substance: RISPERIDONE
     Indication: Epilepsy
  3. LAMOTRIGINE [Suspect]
     Active Substance: LAMOTRIGINE
     Indication: Schizophrenia
     Dosage: QD
     Route: 048
     Dates: start: 20241103, end: 20241127

REACTIONS (1)
  - Drug eruption [Recovering/Resolving]

NARRATIVE: CASE EVENT DATE: 20241123
